FAERS Safety Report 4803947-7 (Version None)
Quarter: 2005Q3

REPORT INFORMATION
  Report Type: 
  Country: None (occurrence: None)
  Receive Date: 20050920
  Receipt Date: 20050620
  Transmission Date: 20060218
  Serious: No
  Sender: FDA-Public Use
  Company Number: US-YAMANOUCHI-YPA20050314

PATIENT
  Age: 86 Year
  Sex: Female

DRUGS (8)
  1. VESICARE [Suspect]
     Indication: HYPERTONIC BLADDER
     Dosage: 5 MG PO
     Route: 048
     Dates: start: 20050425, end: 20050524
  2. VESICARE [Suspect]
     Indication: HYPERTONIC BLADDER
     Dosage: 10 MG PO
     Route: 048
     Dates: start: 20050525, end: 20050101
  3. VESICARE [Suspect]
     Indication: HYPERTONIC BLADDER
     Dates: start: 20050101
  4. NORVASC [Concomitant]
  5. DIGOXIN [Concomitant]
  6. ACIPHEX [Concomitant]
  7. COUMADIN [Concomitant]
  8. SYNTHROID [Concomitant]

REACTIONS (1)
  - COLOUR BLINDNESS ACQUIRED [None]
